FAERS Safety Report 9395075 (Version 2)
Quarter: 2014Q1

REPORT INFORMATION
  Report Type: Report from Study
  Country: CA (occurrence: CA)
  Receive Date: 20130711
  Receipt Date: 20140120
  Transmission Date: 20141002
  Serious: Yes (Hospitalization)
  Sender: FDA-Public Use
  Company Number: CA-JNJFOC-20130703797

PATIENT
  Sex: Female
  Weight: 114.7 kg

DRUGS (10)
  1. REMICADE [Suspect]
     Indication: COLITIS ULCERATIVE
     Route: 042
     Dates: start: 20111205
  2. REMICADE [Suspect]
     Indication: CROHN^S DISEASE
     Route: 042
     Dates: start: 20111205
  3. ZOPICLONE [Concomitant]
     Route: 065
  4. DIFLUCAN [Concomitant]
     Route: 065
  5. TRAZODONE [Concomitant]
     Route: 065
  6. VITAMIN D [Concomitant]
     Route: 065
  7. FOLIC ACID [Concomitant]
     Route: 065
  8. VITAMIN B12 [Concomitant]
     Route: 065
  9. CIPRALEX [Concomitant]
     Route: 065
  10. SULPHA [Concomitant]
     Indication: DIABETES MELLITUS
     Route: 065

REACTIONS (2)
  - Nephrolithiasis [Recovering/Resolving]
  - Malaise [Unknown]
